FAERS Safety Report 9413082 (Version 1)
Quarter: 2013Q3

REPORT INFORMATION
  Report Type: Report from Study
  Country: NL (occurrence: NL)
  Receive Date: 20130722
  Receipt Date: 20130722
  Transmission Date: 20140515
  Serious: Yes (Death, Hospitalization)
  Sender: FDA-Public Use
  Company Number: NL-GLAXOSMITHKLINE-Z0000650B

PATIENT
  Age: 37 Year
  Sex: Female
  Weight: 74.5 kg

DRUGS (2)
  1. TOPOTECAN [Suspect]
     Indication: NEOPLASM
     Dosage: 4MG SEE DOSAGE TEXT
     Route: 048
     Dates: start: 20081127, end: 20081211
  2. PAZOPANIB [Suspect]
     Indication: NEOPLASM
     Dosage: 800MG PER DAY
     Route: 048
     Dates: start: 20081128, end: 20081229

REACTIONS (1)
  - Hepatic necrosis [Fatal]
